FAERS Safety Report 10513816 (Version 2)
Quarter: 2014Q4

REPORT INFORMATION
  Report Type: Spontaneous
  Country: US (occurrence: US)
  Receive Date: 20141013
  Receipt Date: 20141104
  Transmission Date: 20150528
  Serious: Yes (Other)
  Sender: FDA-Public Use
  Company Number: US-GLAXOSMITHKLINE-US2014GSK004514

PATIENT

DRUGS (1)
  1. LOVAZA [Suspect]
     Active Substance: OMEGA-3-ACID ETHYL ESTERS
     Indication: BLOOD CHOLESTEROL DECREASED
     Dosage: 1 DF, QID
     Route: 048

REACTIONS (2)
  - Spinal cord disorder [Unknown]
  - Radiculopathy [Unknown]

NARRATIVE: CASE EVENT DATE: 201404
